FAERS Safety Report 22143647 (Version 1)
Quarter: 2023Q1

REPORT INFORMATION
  Report Type: Spontaneous
  Country: CN (occurrence: CN)
  Receive Date: 20230327
  Receipt Date: 20230327
  Transmission Date: 20230417
  Serious: Yes (Hospitalization, Other)
  Sender: FDA-Public Use
  Company Number: CN-BAYER-2023A034497

PATIENT
  Age: 56 Year
  Sex: Male
  Weight: 70 kg

DRUGS (2)
  1. STIVARGA [Suspect]
     Active Substance: REGORAFENIB
     Indication: Hepatic cancer
     Dosage: 80 MG, QD
     Route: 048
     Dates: start: 20221228, end: 20230228
  2. SINTILIMAB [Concomitant]
     Active Substance: SINTILIMAB
     Indication: Chemotherapy
     Dosage: 200 MG, Q3WK
     Route: 041
     Dates: start: 20221228, end: 20230228

REACTIONS (6)
  - Scrotal ulcer [Recovering/Resolving]
  - Skin ulcer haemorrhage [Recovering/Resolving]
  - Scrotal exfoliation [Recovering/Resolving]
  - Skin exfoliation [Recovering/Resolving]
  - Skin weeping [Recovering/Resolving]
  - Off label use [None]

NARRATIVE: CASE EVENT DATE: 20221228
